FAERS Safety Report 9982597 (Version 1)
Quarter: 2014Q1

REPORT INFORMATION
  Report Type: Report from Study
  Country: US (occurrence: US)
  Receive Date: 20140307
  Receipt Date: 20140307
  Transmission Date: 20141002
  Serious: No
  Sender: FDA-Public Use
  Company Number: US-ABBVIE-13P-163-1180729-00

PATIENT
  Age: 21 Year
  Sex: Male

DRUGS (5)
  1. HUMIRA [Suspect]
     Indication: CROHN^S DISEASE
     Dates: start: 201301
  2. SERTRALINE [Concomitant]
     Indication: MOOD SWINGS
  3. TRAMADOL [Concomitant]
     Indication: PAIN
  4. ATORVASTATIN [Concomitant]
     Indication: BLOOD CHOLESTEROL INCREASED
  5. ZANTAC [Concomitant]
     Indication: DYSPEPSIA

REACTIONS (3)
  - Toothache [Not Recovered/Not Resolved]
  - Ear infection [Recovered/Resolved]
  - Ear infection [Recovering/Resolving]
